FAERS Safety Report 9290674 (Version 1)
Quarter: 2013Q2

REPORT INFORMATION
  Report Type: Spontaneous
  Country: AR (occurrence: AR)
  Receive Date: 20130515
  Receipt Date: 20130515
  Transmission Date: 20140414
  Serious: Yes (Other)
  Sender: FDA-Public Use
  Company Number: AR-PFIZER INC-2013147992

PATIENT
  Age: 7 Month
  Sex: Male

DRUGS (1)
  1. RAPAMUNE [Suspect]
     Indication: LIVER TRANSPLANT
     Dosage: 1.5 ML, 1X/DAY
     Dates: start: 20130205

REACTIONS (3)
  - Cerebrovascular accident [Not Recovered/Not Resolved]
  - Off label use [Not Recovered/Not Resolved]
  - Liver function test abnormal [Not Recovered/Not Resolved]
